FAERS Safety Report 8049585 (Version 2)
Quarter: 2013Q4

REPORT INFORMATION
  Report Type: Spontaneous
  Country: US (occurrence: US)
  Receive Date: 20110722
  Receipt Date: 20131211
  Transmission Date: 20140711
  Serious: Yes (Hospitalization, Other)
  Sender: FDA-Public Use
  Company Number: US-ROCHE-691754

PATIENT
  Age: 14 Year
  Sex: Male
  Weight: 59 kg

DRUGS (1)
  1. ACCUTANE [Suspect]
     Indication: ACNE
     Route: 048
     Dates: start: 20080201, end: 20080229

REACTIONS (5)
  - Colitis [Unknown]
  - Inflammatory bowel disease [Unknown]
  - Haematochezia [Unknown]
  - Blood alkaline phosphatase increased [Unknown]
  - Aphthous stomatitis [Unknown]
